FAERS Safety Report 9365909 (Version 1)
Quarter: 2013Q2

REPORT INFORMATION
  Report Type: Spontaneous
  Country: US (occurrence: US)
  Receive Date: 20130625
  Receipt Date: 20130625
  Transmission Date: 20140414
  Serious: Yes (Other)
  Sender: FDA-Public Use
  Company Number: US-SANOFI-AVENTIS-2013SA062649

PATIENT
  Age: 73 Year
  Sex: Female

DRUGS (3)
  1. LANTUS [Suspect]
     Indication: TYPE 2 DIABETES MELLITUS
     Dosage: DOSE:50 UNIT(S)
     Route: 058
  2. HUMULIN [Concomitant]
  3. ALL OTHER THERAPEUTIC PRODUCTS [Concomitant]

REACTIONS (9)
  - Breast cancer [Unknown]
  - Cardiac failure [Unknown]
  - Local swelling [Unknown]
  - Walking disability [Unknown]
  - Emphysema [Unknown]
  - Chronic obstructive pulmonary disease [Unknown]
  - Back disorder [Unknown]
  - Visual acuity reduced [Unknown]
  - Blood glucose increased [Unknown]
